FAERS Safety Report 12657759 (Version 1)
Quarter: 2016Q3

REPORT INFORMATION
  Report Type: Spontaneous
  Country: CN (occurrence: CN)
  Receive Date: 20160816
  Receipt Date: 20160816
  Transmission Date: 20161109
  Serious: No
  Sender: FDA-Public Use
  Company Number: CN-ELI_LILLY_AND_COMPANY-CN201608007106

PATIENT
  Sex: Female

DRUGS (2)
  1. SHU SI [Suspect]
     Active Substance: QUETIAPINE FUMARATE
     Indication: SCHIZOPHRENIA
     Dosage: 0.2 MG, UNK
     Route: 048
     Dates: start: 20160128, end: 20160226
  2. ZYPREXA [Suspect]
     Active Substance: OLANZAPINE
     Indication: SCHIZOPHRENIA
     Dosage: 7.5 MG, BID
     Route: 048
     Dates: start: 20160128, end: 20160226

REACTIONS (1)
  - White blood cell count decreased [Recovering/Resolving]
